FAERS Safety Report 16896258 (Version 1)
Quarter: 2019Q4

REPORT INFORMATION
  Report Type: Report from Study
  Country: CA (occurrence: CA)
  Receive Date: 20191008
  Receipt Date: 20191008
  Transmission Date: 20200122
  Serious: Yes (Other)
  Sender: FDA-Public Use
  Company Number: CA-SA-2016SA180372

PATIENT
  Age: 35 Year
  Sex: Female

DRUGS (10)
  1. REACTINE [CETIRIZINE HYDROCHLORIDE] [Concomitant]
     Active Substance: CETIRIZINE HYDROCHLORIDE
     Indication: PREMEDICATION
     Dosage: 1 DF,UNK
     Route: 048
     Dates: start: 20160926, end: 20160928
  2. ERGOCALCIFEROL. [Concomitant]
     Active Substance: ERGOCALCIFEROL
     Indication: PROPHYLAXIS
     Dosage: UNK, UNK
     Route: 048
  3. CENTRUM [ASCORBIC ACID;BIOTIN;CALCIUM;CALCIUM PANTOTHENATE;COLECALCIFE [Concomitant]
     Indication: PROPHYLAXIS
     Dosage: UNK UNK, UNK
     Route: 048
  4. BENADRYL [Concomitant]
     Active Substance: DIPHENHYDRAMINE HYDROCHLORIDE
     Indication: PREMEDICATION
     Dosage: 50 MG,UNK
     Route: 042
     Dates: start: 20160926, end: 20160928
  5. PARACETAMOL [Concomitant]
     Active Substance: ACETAMINOPHEN
     Indication: PREMEDICATION
     Dosage: 325 MG,PRN
     Route: 048
     Dates: start: 20160926
  6. ZANTAC [Concomitant]
     Active Substance: RANITIDINE HYDROCHLORIDE
     Indication: PREMEDICATION
     Dosage: 150 MG,UNK
     Route: 048
     Dates: start: 20160926, end: 20160928
  7. SOLU-MEDROL [Concomitant]
     Active Substance: METHYLPREDNISOLONE SODIUM SUCCINATE
     Indication: PREMEDICATION
     Dosage: 1000 MG,UNK
     Route: 042
     Dates: start: 20160926, end: 20160928
  8. ALEMTUZUMAB [Suspect]
     Active Substance: ALEMTUZUMAB
     Indication: RELAPSING-REMITTING MULTIPLE SCLEROSIS
     Dosage: 12 MG,QD
     Route: 041
     Dates: start: 20160926, end: 20160928
  9. ACICLOVIR [Concomitant]
     Active Substance: ACYCLOVIR
     Indication: PROPHYLAXIS
     Dosage: 200 MG,UNK
     Route: 048
     Dates: start: 20160926
  10. FAMPYRA [Concomitant]
     Active Substance: DALFAMPRIDINE
     Dosage: UNK, UNK
     Route: 048

REACTIONS (33)
  - Staphylococcal infection [Unknown]
  - Urobilinogen urine increased [Recovered/Resolved]
  - Blood creatinine decreased [Recovered/Resolved]
  - Influenza like illness [Recovered/Resolved]
  - Blood urine present [Recovered/Resolved]
  - Flushing [Recovered/Resolved]
  - Autoimmune thyroiditis [Unknown]
  - Red cell distribution width increased [Recovered/Resolved]
  - Hyperhidrosis [Unknown]
  - Bacterial test positive [Recovered/Resolved]
  - Gastroenteritis viral [Recovered/Resolved]
  - Headache [Recovered/Resolved]
  - Lymphocyte count decreased [Recovered/Resolved]
  - Platelet count decreased [Recovered/Resolved]
  - Multiple sclerosis relapse [Not Recovered/Not Resolved]
  - Haemoglobin decreased [Recovered/Resolved]
  - Cells in urine [Recovered/Resolved]
  - Urine analysis abnormal [Not Recovered/Not Resolved]
  - Lymphocyte percentage decreased [Not Recovered/Not Resolved]
  - Blood thyroid stimulating hormone increased [Recovered/Resolved]
  - Red blood cells urine positive [Recovered/Resolved]
  - Monocyte percentage increased [Recovered/Resolved]
  - Neutrophil percentage increased [Recovered/Resolved]
  - Heart rate decreased [Unknown]
  - Blood thyroid stimulating hormone decreased [Recovered/Resolved]
  - Culture urine positive [Recovered/Resolved]
  - Urinary casts [Unknown]
  - White blood cells urine positive [Recovered/Resolved]
  - Haematocrit decreased [Recovered/Resolved]
  - White blood cell count decreased [Recovered/Resolved]
  - Thyroxine free increased [Recovered/Resolved]
  - Crystal urine present [Not Recovered/Not Resolved]
  - Urine leukocyte esterase positive [Recovered/Resolved]

NARRATIVE: CASE EVENT DATE: 20160926
